FAERS Safety Report 6710912-1 (Version None)
Quarter: 2010Q2

REPORT INFORMATION
  Report Type: 
  Country: None (occurrence: None)
  Receive Date: 20100505
  Receipt Date: 20100427
  Transmission Date: 20101027
  Serious: No
  Sender: FDA-Public Use
  Company Number: US-BIOGENIDEC-2010BI014505

PATIENT
  Age: 56 Year
  Sex: Female

DRUGS (1)
  1. TYSABRI [Suspect]
     Indication: MULTIPLE SCLEROSIS
     Route: 042
     Dates: start: 20071024

REACTIONS (5)
  - ARTHRALGIA [None]
  - DRUG EFFECT DECREASED [None]
  - MUSCLE FATIGUE [None]
  - MUSCLE SPASTICITY [None]
  - POSTURE ABNORMAL [None]
